FAERS Safety Report 15143757 (Version 1)
Quarter: 2018Q3

REPORT INFORMATION
  Report Type: Spontaneous
  Country: US (occurrence: US)
  Receive Date: 20180713
  Receipt Date: 20180713
  Transmission Date: 20181010
  Serious: No
  Sender: FDA-Public Use
  Company Number: US-AMGEN-USASP2010008059

PATIENT
  Age: 76 Year
  Sex: Male

DRUGS (3)
  1. EPOGEN [Suspect]
     Active Substance: ERYTHROPOIETIN
     Indication: END STAGE RENAL DISEASE
     Dates: start: 1999
  2. EPOGEN [Suspect]
     Active Substance: ERYTHROPOIETIN
     Dosage: 12000 IU, UNK
     Dates: start: 20101113
  3. EPOGEN [Suspect]
     Active Substance: ERYTHROPOIETIN
     Dosage: 9500 IU, UNK
     Dates: start: 20101111

REACTIONS (1)
  - Therapeutic response decreased [Not Recovered/Not Resolved]

NARRATIVE: CASE EVENT DATE: 20101110
